FAERS Safety Report 8886297 (Version 1)
Quarter: 2012Q4

REPORT INFORMATION
  Report Type: 
  Country: AU (occurrence: AU)
  Receive Date: 20121105
  Receipt Date: 20121105
  Transmission Date: 20130627
  Serious: Yes (Hospitalization)
  Sender: FDA-Public Use
  Company Number: PHHY2012AU100077

PATIENT
  Sex: Male

DRUGS (1)
  1. CLOZARIL [Suspect]
     Dosage: 250 mg, UNK
     Dates: start: 20090609

REACTIONS (2)
  - Schizophrenia [Unknown]
  - Blood creatine phosphokinase increased [Recovering/Resolving]
